FAERS Safety Report 6950074-9 (Version None)
Quarter: 2010Q3

REPORT INFORMATION
  Report Type: 
  Country: None (occurrence: None)
  Receive Date: 20100828
  Receipt Date: 20100126
  Transmission Date: 20110219
  Serious: No
  Sender: FDA-Public Use
  Company Number: US-ABBOTT-10P-163-0623173-00

PATIENT
  Age: 53 Year
  Sex: Female
  Weight: 61.29 kg

DRUGS (6)
  1. NIASPAN [Suspect]
     Indication: BLOOD CHOLESTEROL INCREASED
     Dates: start: 20091101, end: 20091201
  2. NIASPAN [Suspect]
     Dates: start: 20091201, end: 20100121
  3. NIASPAN [Suspect]
     Dates: start: 20100121
  4. ARTHROTEC [Concomitant]
     Indication: ARTHRITIS
     Dosage: DAILY
  5. LEXAPRO [Concomitant]
     Indication: PRODUCT USED FOR UNKNOWN INDICATION
     Dosage: LOW DOSE, DAILY
  6. ACTONEL [Concomitant]
     Indication: ARTHRITIS

REACTIONS (9)
  - BURNING SENSATION [None]
  - DECREASED APPETITE [None]
  - DIARRHOEA [None]
  - DIZZINESS [None]
  - FLUSHING [None]
  - HEADACHE [None]
  - HEART RATE INCREASED [None]
  - NAUSEA [None]
  - SENSORY DISTURBANCE [None]
